FAERS Safety Report 25856728 (Version 1)
Quarter: 2025Q3

REPORT INFORMATION
  Report Type: Spontaneous
  Country: US (occurrence: US)
  Receive Date: 20250929
  Receipt Date: 20250929
  Transmission Date: 20251021
  Serious: Yes (Other)
  Sender: JOHNSON AND JOHNSON
  Company Number: US-JNJFOC-20250934791

PATIENT

DRUGS (1)
  1. CARVYKTI [Suspect]
     Active Substance: CILTACABTAGENE AUTOLEUCEL
     Indication: Plasma cell myeloma refractory
     Route: 065
     Dates: start: 20220721, end: 20241031

REACTIONS (8)
  - Facial paralysis [Unknown]
  - VIth nerve paralysis [Unknown]
  - IIIrd nerve paralysis [Unknown]
  - Immune effector cell-associated neurotoxicity syndrome [Unknown]
  - Guillain-Barre syndrome [Unknown]
  - Neuropathy peripheral [Unknown]
  - Personality change [Unknown]
  - Parkinsonism [Unknown]
